FAERS Safety Report 16043349 (Version 2)
Quarter: 2022Q4

REPORT INFORMATION
  Report Type: Report from Study
  Country: US (occurrence: US)
  Receive Date: 20190306
  Receipt Date: 20221018
  Transmission Date: 20230113
  Serious: Yes (Life-Threatening)
  Sender: FDA-Public Use
  Company Number: US-JNJFOC-20190240641

PATIENT

DRUGS (1)
  1. REMICADE [Suspect]
     Active Substance: INFLIXIMAB
     Indication: Product used for unknown indication

REACTIONS (6)
  - Heart rate increased [Unknown]
  - Hypertension [Unknown]
  - Dyspnoea [Unknown]
  - Urticaria [Unknown]
  - Pruritus [Unknown]
  - Infusion related reaction [Unknown]
